FAERS Safety Report 4511563-X (Version None)
Quarter: 2004Q4

REPORT INFORMATION
  Report Type: 
  Country: None (occurrence: None)
  Receive Date: 20041129
  Receipt Date: 20040928
  Transmission Date: 20050328
  Serious: No
  Sender: FDA-Public Use
  Company Number: US-BRISTOL-MYERS SQUIBB COMPANY-12716668

PATIENT
  Age: 21 Year
  Sex: Male

DRUGS (13)
  1. ABILIFY [Suspect]
  2. BUSPIRONE [Suspect]
  3. SERZONE [Suspect]
  4. IMIPRAM TAB [Concomitant]
  5. LAMICTAL [Concomitant]
  6. LITHIUM [Concomitant]
  7. ESKALITH [Concomitant]
  8. PARNATE [Concomitant]
  9. WELLBUTRIN [Concomitant]
  10. REMERON [Concomitant]
  11. EFFEXOR [Concomitant]
  12. XANAX [Concomitant]
  13. PROZAC [Concomitant]

REACTIONS (1)
  - DRUG INEFFECTIVE [None]
